FAERS Safety Report 7476671-2 (Version None)
Quarter: 2011Q2

REPORT INFORMATION
  Report Type: 
  Country: None (occurrence: None)
  Receive Date: 20110512
  Receipt Date: 20110509
  Transmission Date: 20111010
  Serious: Yes (Hospitalization)
  Sender: FDA-Public Use
  Company Number: FR-PFIZER INC-2011091324

PATIENT
  Age: 36 Year
  Sex: Female

DRUGS (9)
  1. LEVEMIR [Concomitant]
     Indication: DIABETES MELLITUS
     Route: 058
  2. FOLIC ACID [Concomitant]
     Indication: RENAL TRANSPLANT
     Dosage: 5 MG, 3X/DAY
     Route: 048
     Dates: start: 20110116, end: 20110120
  3. LEXOMIL [Concomitant]
     Indication: ANXIETY
     Route: 048
  4. FLUCONAZOLE [Suspect]
     Indication: STOMATITIS
     Dosage: 100 MG, AFTER EACH DIALYSIS
     Route: 048
     Dates: start: 20110117, end: 20110119
  5. METHOTREXATE [Suspect]
     Indication: ARTHRITIS
     Dosage: 10 MG, WEEKLY
     Route: 048
     Dates: start: 20110116, end: 20110116
  6. PREDNISONE [Suspect]
     Indication: RENAL TRANSPLANT
     Dosage: UNK
     Route: 048
     Dates: start: 20110115, end: 20110121
  7. APIDRA [Concomitant]
     Indication: TYPE 1 DIABETES MELLITUS
     Route: 058
  8. IMODIUM [Concomitant]
     Route: 048
  9. SEROPLEX [Concomitant]
     Indication: DEPRESSION
     Dosage: 20 MG, 1X/DAY
     Route: 048

REACTIONS (3)
  - OROPHARYNGEAL SWELLING [None]
  - DYSPHAGIA [None]
  - DERMATITIS BULLOUS [None]
